FAERS Safety Report 13653135 (Version 1)
Quarter: 2017Q2

REPORT INFORMATION
  Report Type: Spontaneous
  Country: US (occurrence: US)
  Receive Date: 20170614
  Receipt Date: 20170614
  Transmission Date: 20170830
  Serious: No
  Sender: FDA-Public Use
  Company Number: US-ROCHE-1306949

PATIENT
  Sex: Female

DRUGS (3)
  1. XELODA [Suspect]
     Active Substance: CAPECITABINE
     Dosage: 7 DAYS ON THEN 7 DAYS OFF
     Route: 048
     Dates: start: 20130315
  2. XELODA [Suspect]
     Active Substance: CAPECITABINE
     Indication: BREAST CANCER
     Dosage: 500 MG - 3 TABS, 7 DAYS ON THEN 7 DAYS OFF
     Route: 048
     Dates: start: 20121122
  3. XELODA [Suspect]
     Active Substance: CAPECITABINE
     Dosage: 500 MG, 3 TABLETS, TWICE DAILY
     Route: 048
     Dates: start: 20120315

REACTIONS (2)
  - Nausea [Unknown]
  - Diarrhoea [Unknown]
